FAERS Safety Report 17986132 (Version 1)
Quarter: 2020Q3

REPORT INFORMATION
  Report Type: Other
  Country: NL (occurrence: NL)
  Receive Date: 20200707
  Receipt Date: 20200707
  Transmission Date: 20201103
  Serious: Yes (Death, Other)
  Sender: FDA-Public Use
  Company Number: NL-DEXPHARM-20200529

PATIENT
  Age: 17 Year
  Sex: Male

DRUGS (2)
  1. ISOSORBIDE MONONITRATE. [Suspect]
     Active Substance: ISOSORBIDE MONONITRATE
     Dosage: DAILY DOSE: 60 MG MILLGRAM(S) EVERY DAYS
     Route: 048
  2. CEFPROZIL. [Concomitant]
     Active Substance: CEFPROZIL
     Indication: ACUTE SINUSITIS
     Route: 048

REACTIONS (4)
  - Gun shot wound [Fatal]
  - Product dispensing error [Fatal]
  - Overdose [Fatal]
  - Completed suicide [Fatal]
